FAERS Safety Report 8122865-2 (Version None)
Quarter: 2011Q4

REPORT INFORMATION
  Report Type: 
  Country: None (occurrence: None)
  Receive Date: 20111227
  Receipt Date: 20111114
  Transmission Date: 20120403
  Serious: No
  Sender: FDA-Public Use
  Company Number: PHEH2011US009293

PATIENT
  Age: 56 Year
  Sex: Female

DRUGS (7)
  1. CYMBALTA [Concomitant]
  2. MAXALT [Concomitant]
  3. LUNESTA [Concomitant]
  4. LISINOPRIL [Concomitant]
  5. GILENYA [Suspect]
     Dosage: 0.5 MG, QD, ORAL
     Route: 048
  6. OXYBUTYNIN [Concomitant]
  7. XALATAN [Concomitant]

REACTIONS (1)
  - WEIGHT INCREASED [None]
